FAERS Safety Report 20496639 (Version 2)
Quarter: 2022Q1

REPORT INFORMATION
  Report Type: Spontaneous
  Country: CN (occurrence: CN)
  Receive Date: 20220221
  Receipt Date: 20220222
  Transmission Date: 20220424
  Serious: Yes (Other)
  Sender: FDA-Public Use
  Company Number: CN-BIOGEN-2022BI01095709

PATIENT
  Age: 3 Year

DRUGS (1)
  1. SPINRAZA [Suspect]
     Active Substance: NUSINERSEN
     Indication: Spinal muscular atrophy
     Route: 037
     Dates: start: 20220129

REACTIONS (5)
  - Intracranial pressure increased [Unknown]
  - Decreased appetite [Unknown]
  - Urine ketone body present [Unknown]
  - Post lumbar puncture syndrome [Recovered/Resolved]
  - Urticaria [Recovered/Resolved]

NARRATIVE: CASE EVENT DATE: 20220129
